FAERS Safety Report 7948231-8 (Version None)
Quarter: 2011Q4

REPORT INFORMATION
  Report Type: 
  Country: None (occurrence: None)
  Receive Date: 20111125
  Receipt Date: 20111111
  Transmission Date: 20120403
  Serious: Yes (Other)
  Sender: FDA-Public Use
  Company Number: FK201102645

PATIENT

DRUGS (1)
  1. HYDRALAZINE HYDROCHLORIDE [Suspect]
     Indication: CARDIAC DISORDER
     Dosage: 10 MG, IV
     Route: 042
     Dates: start: 20111110

REACTIONS (4)
  - FLUSHING [None]
  - ANGINA PECTORIS [None]
  - RESPIRATORY DISTRESS [None]
  - TREMOR [None]
